FAERS Safety Report 6759293-8 (Version None)
Quarter: 2010Q2

REPORT INFORMATION
  Report Type: 
  Country: None (occurrence: None)
  Receive Date: 20100607
  Receipt Date: 20100527
  Transmission Date: 20101027
  Serious: Yes (Hospitalization)
  Sender: FDA-Public Use
  Company Number: FR-PFIZER INC-2010066733

PATIENT
  Age: 72 Year
  Sex: Male

DRUGS (13)
  1. LYRICA [Suspect]
     Dosage: 100 MG, 3X/DAY
     Route: 048
     Dates: end: 20091018
  2. TAHOR [Suspect]
     Dosage: 10 MG, 1X/DAY
     Route: 048
     Dates: end: 20091018
  3. ARIXTRA [Suspect]
     Dosage: 7.5 MG, 1X/DAY
     Dates: start: 20090814, end: 20091018
  4. KARDEGIC [Suspect]
     Dosage: 160 MG, 1X/DAY
     Route: 048
     Dates: end: 20091018
  5. KARDEGIC [Suspect]
     Dosage: UNK
  6. APROVEL [Suspect]
     Dosage: 150 MG, 1X/DAY
     Route: 048
     Dates: end: 20091018
  7. MIANSERIN [Suspect]
     Dosage: 10 MG, 2X/DAY
     Route: 048
     Dates: end: 20091018
  8. OGASTRO [Suspect]
     Dosage: 15 MG, 1X/DAY
     Route: 048
     Dates: end: 20091018
  9. CONTRAMAL [Suspect]
     Dosage: 100 MG, 2X/DAY
     Route: 048
     Dates: end: 20091018
  10. ATARAX [Suspect]
     Dosage: 25 MG, 1X/DAY
     Route: 048
     Dates: end: 20091018
  11. LANSOYL [Concomitant]
     Dosage: UNK
  12. XANAX [Concomitant]
     Dosage: UNK
  13. DOLIPRANE [Concomitant]
     Dosage: 3 GRAMS PER DAY

REACTIONS (1)
  - INTRA-ABDOMINAL HAEMATOMA [None]
